FAERS Safety Report 10527128 (Version 1)
Quarter: 2014Q4

REPORT INFORMATION
  Report Type: Spontaneous
  Country: FR (occurrence: FR)
  Receive Date: 20141020
  Receipt Date: 20141020
  Transmission Date: 20150528
  Serious: Yes (Other)
  Sender: FDA-Public Use
  Company Number: FR-TEVA-515094ISR

PATIENT
  Age: 34 Year
  Sex: Female

DRUGS (5)
  1. COTRIMOXAZOLE [Suspect]
     Active Substance: SULFAMETHOXAZOLE\TRIMETHOPRIM
     Indication: ANTIFUNGAL PROPHYLAXIS
     Dosage: TRIMETHOPRIM 160MG/SULFAMETHOXAZOLE 800MG, 1 TABLET 3 TIMES WEEKLY
     Route: 065
  2. COMBIVIR [Suspect]
     Active Substance: LAMIVUDINE\ZIDOVUDINE
     Indication: HIV INFECTION
     Dosage: LAMIVUDINE 150MG/ZIDOVUDINE 300MG, 1 TABLET TWICE DAILY
     Route: 065
  3. RALTEGRAVIR [Suspect]
     Active Substance: RALTEGRAVIR
     Indication: HIV INFECTION
     Dosage: 800 MILLIGRAM DAILY;
     Route: 065
  4. FERROUS SULFATE [Concomitant]
     Active Substance: FERROUS SULFATE\FERROUS SULFATE, DRIED
     Indication: ANAEMIA
     Dosage: 600 MG/DAY
     Route: 065
  5. KALETRA [Suspect]
     Active Substance: LOPINAVIR\RITONAVIR
     Indication: HIV INFECTION
     Dosage: LOPINAVIR 200MG/RITONAVIR 50MG, TWO TABLETS TWICE DAILY
     Route: 065

REACTIONS (4)
  - Caesarean section [Unknown]
  - Maternal exposure during pregnancy [Recovered/Resolved]
  - Transaminases increased [Recovered/Resolved]
  - Normal newborn [Unknown]
